FAERS Safety Report 10296451 (Version 1)
Quarter: 2014Q3

REPORT INFORMATION
  Report Type: Spontaneous
  Country: BE (occurrence: BE)
  Receive Date: 20140711
  Receipt Date: 20140711
  Transmission Date: 20150326
  Serious: Yes (Hospitalization)
  Sender: FDA-Public Use
  Company Number: PHHY2014BE084072

PATIENT
  Age: 28 Year
  Sex: Female

DRUGS (1)
  1. CAFERGOT [Suspect]
     Active Substance: CAFFEINE\ERGOTAMINE TARTRATE

REACTIONS (14)
  - Retroperitoneal fibrosis [Unknown]
  - Abdominal pain upper [Unknown]
  - Nausea [Unknown]
  - Vomiting [Unknown]
  - Renal pain [Unknown]
  - Renal failure [Unknown]
  - Decreased appetite [Unknown]
  - Weight decreased [Unknown]
  - Constipation [Unknown]
  - Abdominal pain [Unknown]
  - Cough [Unknown]
  - Back pain [Unknown]
  - Pyrexia [Unknown]
  - Hydronephrosis [Unknown]
